FAERS Safety Report 4476292-X (Version None)
Quarter: 2004Q4

REPORT INFORMATION
  Report Type: 
  Country: None (occurrence: None)
  Receive Date: 20041016
  Receipt Date: 20041011
  Transmission Date: 20050328
  Serious: Yes (Other)
  Sender: FDA-Public Use
  Company Number: GB-MERCK-0410GBR00106

PATIENT
  Age: 67 Year
  Sex: Female
  Weight: 88 kg

DRUGS (5)
  1. AZATHIOPRINE [Concomitant]
     Route: 048
  2. CANDESARTAN [Concomitant]
     Route: 048
  3. DOXAZOSIN MESYLATE [Concomitant]
     Route: 048
  4. PREDNISOLONE [Concomitant]
     Route: 048
  5. ZOCOR [Suspect]
     Route: 048
     Dates: start: 20040101, end: 20040824

REACTIONS (2)
  - ERYTHEMA [None]
  - PRURITUS [None]
